FAERS Safety Report 4780929-5 (Version None)
Quarter: 2005Q3

REPORT INFORMATION
  Report Type: 
  Country: None (occurrence: None)
  Receive Date: 20050926
  Receipt Date: 20050909
  Transmission Date: 20060218
  Serious: Yes (Other)
  Sender: FDA-Public Use
  Company Number: B0394502A

PATIENT
  Age: 43 Year
  Sex: Male

DRUGS (5)
  1. FLOVENT [Suspect]
     Dosage: 250 MCG, TWICE PER DAY; INHALED
     Route: 055
  2. RITONAVIR (FORMULATION UNKNOWN) (RITONAVIR) [Suspect]
     Indication: HIV INFECTION
  3. ATAZANAVIR [Concomitant]
  4. NEVIRAPINE [Concomitant]
  5. KETOCONAZOLE [Concomitant]

REACTIONS (14)
  - ANOREXIA [None]
  - ARTHRALGIA [None]
  - BLOOD CORTISOL DECREASED [None]
  - BLOOD PRESSURE DECREASED [None]
  - COGNITIVE DISORDER [None]
  - CUSHING'S SYNDROME [None]
  - DEPRESSION [None]
  - DRUG INTERACTION [None]
  - FAT REDISTRIBUTION [None]
  - FATIGUE [None]
  - MYALGIA [None]
  - ONYCHOMYCOSIS [None]
  - RASH [None]
  - WEIGHT DECREASED [None]
